FAERS Safety Report 7647309-6 (Version None)
Quarter: 2011Q3

REPORT INFORMATION
  Report Type: 
  Country: None (occurrence: None)
  Receive Date: 20110801
  Receipt Date: 20110725
  Transmission Date: 20111222
  Serious: Yes (Hospitalization, Other)
  Sender: FDA-Public Use
  Company Number: US-BAYER-2011-034997

PATIENT
  Age: 26 Year
  Sex: Female
  Weight: 54 kg

DRUGS (5)
  1. YASMIN [Suspect]
     Indication: ACNE
     Dosage: UNK
     Dates: start: 20060614, end: 20061006
  2. YASMIN [Suspect]
     Indication: ORAL CONTRACEPTION
  3. YAZ [Suspect]
     Indication: ORAL CONTRACEPTION
  4. YAZ [Suspect]
     Indication: ACNE
     Dosage: UNK
     Dates: start: 20061006, end: 20090410
  5. GABAPENTIN [Concomitant]
     Dosage: 100 MG, QD
     Dates: start: 20071101

REACTIONS (1)
  - PULMONARY EMBOLISM [None]
